FAERS Safety Report 6388200-5 (Version None)
Quarter: 2009Q4

REPORT INFORMATION
  Report Type: 
  Country: None (occurrence: None)
  Receive Date: 20091001
  Receipt Date: 20091001
  Transmission Date: 20100525
  Serious: Yes (Disabling)
  Sender: FDA-Public Use
  Company Number: None

PATIENT
  Age: 45 Year
  Sex: Female
  Weight: 58.9676 kg

DRUGS (1)
  1. ABILIFY [Suspect]
     Indication: SCHIZOPHRENIA
     Dosage: 30 MG ONCE DAILY
     Dates: start: 20081201, end: 20090101

REACTIONS (4)
  - BLOOD PRESSURE INCREASED [None]
  - DYSGRAPHIA [None]
  - SPEECH DISORDER [None]
  - TREMOR [None]
